FAERS Safety Report 5913636-3 (Version None)
Quarter: 2008Q4

REPORT INFORMATION
  Report Type: 
  Country: None (occurrence: None)
  Receive Date: 20081009
  Receipt Date: 20080929
  Transmission Date: 20090506
  Serious: Yes (Death)
  Sender: FDA-Public Use
  Company Number: GB-ROCHE-588898

PATIENT
  Age: 32 Year
  Sex: Male

DRUGS (5)
  1. GANCICLOVIR [Suspect]
     Route: 065
  2. RITUXIMAB [Suspect]
     Indication: CASTLEMAN'S DISEASE
     Route: 065
  3. KALETRA [Concomitant]
     Indication: HIV INFECTION
     Dosage: ADMINSTERED DAILY
  4. VINCRISTINE [Concomitant]
  5. DEXAMETHASONE [Concomitant]

REACTIONS (2)
  - CASTLEMAN'S DISEASE [None]
  - MULTI-ORGAN FAILURE [None]
